FAERS Safety Report 7724100-3 (Version None)
Quarter: 2011Q3

REPORT INFORMATION
  Report Type: 
  Country: None (occurrence: None)
  Receive Date: 20110901
  Receipt Date: 20110823
  Transmission Date: 20111222
  Serious: Yes (Death)
  Sender: FDA-Public Use
  Company Number: US-UCBSA-039888

PATIENT
  Age: 65 Year
  Sex: Male

DRUGS (1)
  1. VIMPAT [Suspect]
     Dates: start: 20110425, end: 20110101

REACTIONS (1)
  - DEATH [None]
